FAERS Safety Report 8233451-8 (Version None)
Quarter: 2012Q1

REPORT INFORMATION
  Report Type: 
  Country: None (occurrence: None)
  Receive Date: 20120326
  Receipt Date: 20120312
  Transmission Date: 20120608
  Serious: Yes (Hospitalization, Disabling, Other)
  Sender: FDA-Public Use
  Company Number: US-SANOFI-AVENTIS-2012SA017105

PATIENT
  Age: 51 Year
  Sex: Male

DRUGS (4)
  1. METFORMIN HCL [Concomitant]
  2. LANTUS [Suspect]
     Indication: TYPE 2 DIABETES MELLITUS
     Dosage: DOSE:20 UNIT(S)
     Route: 058
  3. SOLOSTAR [Suspect]
     Indication: TYPE 2 DIABETES MELLITUS
  4. HUMALOG [Concomitant]
     Dosage: DOSE:5 UNIT(S)

REACTIONS (4)
  - LACTIC ACIDOSIS [None]
  - OXYGEN SATURATION DECREASED [None]
  - HYPOXIA [None]
  - NEUROPATHY PERIPHERAL [None]
